FAERS Safety Report 8136150-6 (Version None)
Quarter: 2012Q1

REPORT INFORMATION
  Report Type: 
  Country: None (occurrence: None)
  Receive Date: 20120214
  Receipt Date: 20120207
  Transmission Date: 20120608
  Serious: Yes (Disabling, Other)
  Sender: FDA-Public Use
  Company Number: PHHY2012BR011638

PATIENT
  Sex: Female
  Weight: 6 kg

DRUGS (1)
  1. AMOXICILLIN AND CLAVULANATE POTASSIUM [Suspect]
     Indication: URINARY TRACT INFECTION
     Dosage: 2.5 ML, TID
     Route: 048
     Dates: start: 20120206

REACTIONS (4)
  - ABDOMINAL PAIN [None]
  - CYANOSIS [None]
  - CRYING [None]
  - MONOPARESIS [None]
